FAERS Safety Report 4682423-9 (Version None)
Quarter: 2005Q2

REPORT INFORMATION
  Report Type: 
  Country: None (occurrence: None)
  Receive Date: 20050602
  Receipt Date: 20050405
  Transmission Date: 20051028
  Serious: No
  Sender: FDA-Public Use
  Company Number: USA050495200

PATIENT
  Age: 46 Year
  Sex: Female

DRUGS (4)
  1. CYMBALTA [Suspect]
     Dosage: 60 MG
  2. SEROQUEL [Concomitant]
  3. TRAZADONE (TRAZODONE) [Concomitant]
  4. KLONOPIN [Concomitant]

REACTIONS (2)
  - AGITATION [None]
  - RESTLESS LEGS SYNDROME [None]
